FAERS Safety Report 8565183-0 (Version None)
Quarter: 2012Q3

REPORT INFORMATION
  Report Type: 
  Country: None (occurrence: None)
  Receive Date: 20120803
  Receipt Date: 20120719
  Transmission Date: 20120928
  Serious: Yes (Hospitalization)
  Sender: FDA-Public Use
  Company Number: CZ-ROCHE-1090395

PATIENT
  Sex: Female
  Weight: 93 kg

DRUGS (7)
  1. ASPIRIN [Concomitant]
  2. SIMVASTATIN [Concomitant]
  3. CALCIUM [Concomitant]
  4. SPASMED [Concomitant]
  5. PERTUZUMAB [Suspect]
     Indication: BREAST CANCER
     Dosage: DATE OF LAST DOSE PRIOR TO SAE: 4/JUL/2012
     Route: 042
     Dates: start: 20110803
  6. LETROX [Concomitant]
  7. HERCEPTIN [Suspect]
     Indication: BREAST CANCER
     Dosage: DATE OF LAST DOSE PRIOR TO SAE: 04/JUL/2012
     Route: 042
     Dates: start: 20110804

REACTIONS (2)
  - PYURIA [None]
  - ACUTE ABDOMEN [None]
